FAERS Safety Report 10502461 (Version 1)
Quarter: 2014Q4

REPORT INFORMATION
  Report Type: Spontaneous
  Country: US (occurrence: US)
  Receive Date: 20141007
  Receipt Date: 20141007
  Transmission Date: 20150528
  Serious: Yes (Hospitalization)
  Sender: FDA-Public Use
  Company Number: US-BRISTOL-MYERS SQUIBB COMPANY-21457866

PATIENT
  Age: 44 Year
  Sex: Female
  Weight: 70.29 kg

DRUGS (8)
  1. VITAMIN B12 [Concomitant]
     Active Substance: CYANOCOBALAMIN
  2. NEURONTIN [Concomitant]
     Active Substance: GABAPENTIN
  3. ABILIFY [Suspect]
     Active Substance: ARIPIPRAZOLE
  4. AMBIEN [Concomitant]
     Active Substance: ZOLPIDEM TARTRATE
  5. LAMOTRIGINE. [Concomitant]
     Active Substance: LAMOTRIGINE
  6. LORAZEPAM. [Concomitant]
     Active Substance: LORAZEPAM
  7. ALBUTEROL INHALER [Concomitant]
     Active Substance: ALBUTEROL
  8. ABILIFY [Suspect]
     Active Substance: ARIPIPRAZOLE

REACTIONS (1)
  - Asthma [Unknown]
